FAERS Safety Report 17879806 (Version 3)
Quarter: 2021Q3

REPORT INFORMATION
  Report Type: Spontaneous
  Country: US (occurrence: US)
  Receive Date: 20200610
  Receipt Date: 20210915
  Transmission Date: 20211014
  Serious: Yes (Other)
  Sender: FDA-Public Use
  Company Number: US-PFIZER INC-2020225681

PATIENT
  Age: 63 Year
  Sex: Female
  Weight: 77.56 kg

DRUGS (14)
  1. XELJANZ [Suspect]
     Active Substance: TOFACITINIB CITRATE
     Dosage: 10 MG (0.5 TABLET TWICE A DAY)
     Route: 048
     Dates: start: 20210831
  2. SIMVASTATIN. [Concomitant]
     Active Substance: SIMVASTATIN
     Dosage: UNK
  3. ONE A DAY WOMEN^S [Concomitant]
     Active Substance: MINERALS\VITAMINS
     Dosage: UNK
  4. GABAPENTIN. [Concomitant]
     Active Substance: GABAPENTIN
     Dosage: UNK
  5. FISH OIL [Concomitant]
     Active Substance: FISH OIL
     Dosage: UNK
  6. BIOFREEZE [Concomitant]
     Active Substance: MENTHOL
     Dosage: UNK
  7. KRILL OIL [Concomitant]
     Active Substance: DIETARY SUPPLEMENT\KRILL OIL
     Dosage: UNK
  8. VITAMIN D3 [Concomitant]
     Active Substance: CHOLECALCIFEROL
     Dosage: UNK
  9. PROBIOTICS [Concomitant]
     Active Substance: PROBIOTICS NOS
  10. MESALAMINE. [Concomitant]
     Active Substance: MESALAMINE
     Indication: COLITIS ULCERATIVE
     Dosage: 800 MG, 3X/DAY
  11. XELJANZ [Suspect]
     Active Substance: TOFACITINIB CITRATE
     Indication: COLITIS ULCERATIVE
     Dosage: 10 MG, 2X/DAY
     Route: 048
     Dates: start: 202004, end: 202009
  12. TYLENOL [Concomitant]
     Active Substance: ACETAMINOPHEN
     Dosage: UNK
  13. SUMATRIPTAN. [Concomitant]
     Active Substance: SUMATRIPTAN
     Dosage: UNK
  14. METAMUCIL [Concomitant]
     Active Substance: PLANTAGO SEED
     Dosage: UNK

REACTIONS (10)
  - Blood iron decreased [Unknown]
  - Hypertension [Unknown]
  - Heart rate irregular [Unknown]
  - Breast mass [Unknown]
  - Dyspepsia [Unknown]
  - White blood cell count increased [Unknown]
  - Abdominal pain [Unknown]
  - Haematochezia [Unknown]
  - Breast cancer [Recovered/Resolved]
  - Abdominal pain upper [Unknown]

NARRATIVE: CASE EVENT DATE: 202006
